FAERS Safety Report 7439693-3 (Version None)
Quarter: 2011Q2

REPORT INFORMATION
  Report Type: 
  Country: None (occurrence: None)
  Receive Date: 20110427
  Receipt Date: 20110414
  Transmission Date: 20111010
  Serious: Yes (Other)
  Sender: FDA-Public Use
  Company Number: PHHY2011US31737

PATIENT
  Sex: Female
  Weight: 152 kg

DRUGS (12)
  1. MULTIVITAMIN ^LAPPE^ [Concomitant]
  2. THYROXINE [Concomitant]
  3. RESTASIS [Concomitant]
  4. SULFASALAZINE [Concomitant]
  5. RECLAST [Suspect]
     Dosage: 5 MG, UNK
     Route: 042
     Dates: start: 20100501
  6. ZETIA [Concomitant]
  7. POTASSIUM [Concomitant]
  8. PRESERVISION /FRA/ [Concomitant]
  9. LASIX [Concomitant]
  10. OMEPRAZOLE [Concomitant]
  11. PREDNISONE [Concomitant]
  12. CALCIUM [Concomitant]

REACTIONS (5)
  - SPINAL COLUMN STENOSIS [None]
  - GROIN PAIN [None]
  - ARTHRITIS [None]
  - INTERVERTEBRAL DISC DEGENERATION [None]
  - SCOLIOSIS [None]
